FAERS Safety Report 4354573-8 (Version None)
Quarter: 2004Q2

REPORT INFORMATION
  Report Type: 
  Country: None (occurrence: None)
  Receive Date: 20040503
  Receipt Date: 20040426
  Transmission Date: 20050107
  Serious: Yes (Hospitalization)
  Sender: FDA-Public Use
  Company Number: 2004-01757

PATIENT
  Age: 51 Year
  Sex: Male
  Weight: 108.8 kg

DRUGS (5)
  1. PROPAFENONE HCL [Suspect]
     Indication: ATRIAL FIBRILLATION
     Dosage: 1 TABLET, Q8H, ORAL
     Route: 048
     Dates: start: 20010714, end: 20010721
  2. PROPAFENONE HYDROCHLORIDE [Suspect]
     Indication: ATRIAL FIBRILLATION
     Dosage: 1 TABLET, Q8H, ORAL
     Route: 048
     Dates: start: 20000101, end: 20010101
  3. RYTHMOL [Suspect]
     Indication: ATRIAL FIBRILLATION
     Dosage: 1 TABLET, Q8H, ORAL
     Route: 048
  4. COVERA-HS [Concomitant]
  5. NEXIUM [Concomitant]

REACTIONS (2)
  - ATRIAL FIBRILLATION [None]
  - DRUG INEFFECTIVE [None]
